FAERS Safety Report 6884360-8 (Version None)
Quarter: 2010Q3

REPORT INFORMATION
  Report Type: 
  Country: None (occurrence: None)
  Receive Date: 20100729
  Receipt Date: 20070626
  Transmission Date: 20110219
  Serious: No
  Sender: FDA-Public Use
  Company Number: US-PFIZER INC-2007053313

PATIENT
  Sex: Male
  Weight: 93.181 kg

DRUGS (4)
  1. CELEBREX [Suspect]
     Indication: RADIOTHERAPY
     Dates: start: 20070613, end: 20070625
  2. CELEBREX [Suspect]
     Indication: ABDOMINAL DISCOMFORT
  3. CIPROFLOXACIN [Concomitant]
     Dates: start: 20070601
  4. METHYLPREDNISOLONE [Concomitant]
     Dates: start: 20070601

REACTIONS (5)
  - ABDOMINAL DISCOMFORT [None]
  - PRURITUS [None]
  - PYREXIA [None]
  - RASH [None]
  - THROAT IRRITATION [None]
